FAERS Safety Report 9125746 (Version 1)
Quarter: 2013Q1

REPORT INFORMATION
  Report Type: Spontaneous
  Country: GB (occurrence: GB)
  Receive Date: 20130227
  Receipt Date: 20130227
  Transmission Date: 20140127
  Serious: Yes (Other)
  Sender: FDA-Public Use
  Company Number: PHFR2003GB04034

PATIENT
  Sex: Male

DRUGS (5)
  1. CLOZARIL [Suspect]
     Indication: SCHIZOPHRENIA
     Dosage: UNK
     Route: 048
     Dates: start: 20030823
  2. CLOZARIL [Suspect]
     Dosage: 325 MG, BID
     Dates: start: 20040122
  3. SENNA [Concomitant]
     Indication: CONSTIPATION
     Dosage: 2 TABLETS
     Route: 048
     Dates: start: 20040205
  4. ALGICON [Concomitant]
     Indication: DYSPEPSIA
     Dosage: 10 ML, ONCE/SINGLE
     Route: 048
     Dates: start: 20040205
  5. HYOSCINE HYDROBROMIDE [Concomitant]
     Indication: SALIVARY HYPERSECRETION
     Dosage: 900 UG, UNK
     Route: 048
     Dates: start: 20040205

REACTIONS (12)
  - Cerebral atrophy [Unknown]
  - Hypotension [Unknown]
  - Epilepsy [Unknown]
  - Fall [Unknown]
  - Loss of consciousness [Unknown]
  - Tonic clonic movements [Unknown]
  - Drop attacks [Unknown]
  - Eating disorder [Unknown]
  - Hypertension [Unknown]
  - Salivary hypersecretion [Unknown]
  - Constipation [Unknown]
  - Dyspepsia [Unknown]
